FAERS Safety Report 17505399 (Version 1)
Quarter: 2020Q1

REPORT INFORMATION
  Report Type: Spontaneous
  Country: FR (occurrence: FR)
  Receive Date: 20200305
  Receipt Date: 20200305
  Transmission Date: 20200409
  Serious: Yes (Hospitalization, Other)
  Sender: FDA-Public Use
  Company Number: FR-MYLANLABS-2020M1023707

PATIENT
  Age: 14 Year
  Sex: Female
  Weight: 46 kg

DRUGS (4)
  1. TRAMADOL. [Suspect]
     Active Substance: TRAMADOL
     Indication: PRODUCT USED FOR UNKNOWN INDICATION
     Dosage: 150 MILLIGRAM, QD, QUANTITE PRISE SELON LA PATIENTE (NON AVEREE)
     Route: 048
     Dates: start: 20200106, end: 20200106
  2. PARACETAMOL [Suspect]
     Active Substance: ACETAMINOPHEN
     Indication: PRODUCT USED FOR UNKNOWN INDICATION
     Dosage: 9.3 GRAM, QD, QUANTITE PRISE SELON LA PATIENTE (NON AVEREE)
     Route: 048
     Dates: start: 20200106, end: 20200106
  3. HYDROXYZINE CHLORHYDRATE D [Suspect]
     Active Substance: HYDROXYZINE HYDROCHLORIDE
     Indication: PRODUCT USED FOR UNKNOWN INDICATION
     Dosage: 225 MILLIGRAM, QD, QUANTITE PRISE SELON LA PATIENTE (NON AVEREE)
     Route: 048
     Dates: start: 20200106, end: 20200106
  4. DESLORATADINE. [Suspect]
     Active Substance: DESLORATADINE
     Indication: PRODUCT USED FOR UNKNOWN INDICATION
     Dosage: 40 MILLIGRAM, QD, QUANTITE PRISE SELON LA PATIENTE (NON AVEREE)
     Route: 048
     Dates: start: 20200106, end: 20200106

REACTIONS (4)
  - Metabolic acidosis [Recovered/Resolved]
  - Somnolence [Recovered/Resolved]
  - Vomiting [Recovered/Resolved]
  - Poisoning deliberate [Unknown]

NARRATIVE: CASE EVENT DATE: 20200106
